FAERS Safety Report 14033551 (Version 1)
Quarter: 2017Q4

REPORT INFORMATION
  Report Type: Spontaneous
  Country: US (occurrence: US)
  Receive Date: 20171003
  Receipt Date: 20171003
  Transmission Date: 20180321
  Serious: No
  Sender: FDA-Public Use
  Company Number: US-DRREDDYS-USA/USA/16/0082637

PATIENT
  Age: 8 Year
  Sex: Male

DRUGS (4)
  1. BENADRYL [Concomitant]
     Active Substance: DIPHENHYDRAMINE HYDROCHLORIDE
     Indication: CAT SCRATCH DISEASE
     Route: 065
     Dates: end: 201607
  2. AUGMENTIN [Suspect]
     Active Substance: AMOXICILLIN\CLAVULANATE POTASSIUM
     Indication: CAT SCRATCH DISEASE
     Route: 048
     Dates: end: 201607
  3. ADDERALL [Concomitant]
     Active Substance: AMPHETAMINE ASPARTATE\AMPHETAMINE SULFATE\DEXTROAMPHETAMINE SACCHARATE\DEXTROAMPHETAMINE SULFATE
     Indication: ILL-DEFINED DISORDER
     Route: 048
  4. SAPHRIS [Concomitant]
     Active Substance: ASENAPINE MALEATE
     Indication: SCHIZOPHRENIA
     Route: 060
     Dates: start: 201602

REACTIONS (4)
  - Abnormal behaviour [Recovered/Resolved]
  - Scratch [Recovered/Resolved]
  - Therapeutic response unexpected [Unknown]
  - Hallucination, auditory [Recovered/Resolved]
